FAERS Safety Report 7227685-9 (Version None)
Quarter: 2011Q1

REPORT INFORMATION
  Report Type: 
  Country: None (occurrence: None)
  Receive Date: 20110114
  Receipt Date: 20110112
  Transmission Date: 20110831
  Serious: No
  Sender: FDA-Public Use
  Company Number: US-PFIZER INC-2011008860

PATIENT
  Sex: Female
  Weight: 61.224 kg

DRUGS (1)
  1. LYRICA [Suspect]
     Indication: SKELETAL INJURY
     Dosage: 150 MG, EVERY 8 HOURS
     Route: 048
     Dates: start: 20100101

REACTIONS (1)
  - WEIGHT INCREASED [None]
